FAERS Safety Report 6912959-9 (Version None)
Quarter: 2010Q3

REPORT INFORMATION
  Report Type: 
  Country: None (occurrence: None)
  Receive Date: 20100806
  Receipt Date: 20090423
  Transmission Date: 20110219
  Serious: No
  Sender: FDA-Public Use
  Company Number: US-PFIZER INC-2008160287

PATIENT
  Sex: Male
  Weight: 80.7 kg

DRUGS (4)
  1. DETROL LA [Suspect]
     Indication: HYPERTONIC BLADDER
     Dosage: 4 MG, 1X/DAY
     Route: 048
     Dates: start: 20081201, end: 20081228
  2. METFORMIN HYDROCHLORIDE [Concomitant]
     Indication: DIABETES MELLITUS
     Dosage: UNK
     Route: 048
  3. BENICAR [Concomitant]
     Dosage: UNK
     Route: 048
  4. ZOCOR [Concomitant]
     Dosage: UNK
     Route: 048

REACTIONS (2)
  - DRUG INEFFECTIVE [None]
  - RASH [None]
